FAERS Safety Report 6518264-7 (Version None)
Quarter: 2009Q4

REPORT INFORMATION
  Report Type: 
  Country: None (occurrence: None)
  Receive Date: 20091222
  Receipt Date: 20091222
  Transmission Date: 20100525
  Serious: Yes (Hospitalization)
  Sender: FDA-Public Use
  Company Number: None

PATIENT
  Age: 54 Year
  Sex: Male

DRUGS (1)
  1. NORDITROPIN [Suspect]
     Dosage: 0.35 MG QD SC
     Route: 058
     Dates: start: 20081101

REACTIONS (1)
  - MIGRAINE [None]
